FAERS Safety Report 10758708 (Version 1)
Quarter: 2015Q1

REPORT INFORMATION
  Report Type: Spontaneous
  Country: US (occurrence: None)
  Receive Date: 20150123
  Receipt Date: 20150123
  Transmission Date: 20150721
  Serious: No
  Sender: FDA-Public Use
  Company Number: 2014TUS009117

PATIENT
  Sex: Female

DRUGS (2)
  1. ENTYVIO [Suspect]
     Active Substance: VEDOLIZUMAB
     Indication: COLITIS
     Dosage: UNK, FIRST DOSE, INTRAVENOUS
     Route: 042
     Dates: start: 20140916, end: 20140916
  2. ENTYVIO [Suspect]
     Active Substance: VEDOLIZUMAB
     Indication: CROHN^S DISEASE
     Dosage: UNK, FIRST DOSE, INTRAVENOUS
     Route: 042
     Dates: start: 20140916, end: 20140916

REACTIONS (5)
  - Decreased appetite [None]
  - Fatigue [None]
  - Chills [None]
  - Nausea [None]
  - Abdominal discomfort [None]

NARRATIVE: CASE EVENT DATE: 20140917
